FAERS Safety Report 15586943 (Version 1)
Quarter: 2018Q4

REPORT INFORMATION
  Report Type: Report from Study
  Country: AE (occurrence: AE)
  Receive Date: 20181105
  Receipt Date: 20181105
  Transmission Date: 20190205
  Serious: Yes (Hospitalization, Other)
  Sender: FDA-Public Use
  Company Number: US-ASTRAZENECA-2018SF44627

PATIENT
  Age: 77 Day
  Sex: Female

DRUGS (1)
  1. SYNAGIS [Suspect]
     Active Substance: PALIVIZUMAB
     Indication: PREMATURE BABY
     Dosage: ONCE MONTHLY FOR 2 MONTHS
     Route: 030
     Dates: start: 20181017

REACTIONS (1)
  - Lung abscess [Not Recovered/Not Resolved]

NARRATIVE: CASE EVENT DATE: 20181020
